FAERS Safety Report 9474880 (Version 1)
Quarter: 2013Q3

REPORT INFORMATION
  Report Type: Spontaneous
  Country: FR (occurrence: FR)
  Receive Date: 20130823
  Receipt Date: 20130823
  Transmission Date: 20140515
  Serious: Yes (Life-Threatening, Hospitalization)
  Sender: FDA-Public Use
  Company Number: FR-ASTRAZENECA-2013SE65132

PATIENT
  Age: 3375 Week
  Sex: Male

DRUGS (7)
  1. INEXIUM [Suspect]
     Indication: GASTROOESOPHAGEAL REFLUX DISEASE
     Route: 048
     Dates: start: 20130322, end: 20130417
  2. SKENAN S.R [Suspect]
     Indication: PAIN
     Route: 048
     Dates: start: 20130325, end: 20130418
  3. ATARAX [Suspect]
     Indication: INSOMNIA
     Route: 048
     Dates: start: 20130321, end: 20130417
  4. CEFTRIAXONE SODIUM [Concomitant]
  5. ACTISKENAN [Concomitant]
     Route: 048
  6. SOLUPRED [Concomitant]
  7. MICROLAX [Concomitant]

REACTIONS (2)
  - Coma [Recovered/Resolved]
  - Hyponatraemia [Recovering/Resolving]
